FAERS Safety Report 14342153 (Version 1)
Quarter: 2018Q1

REPORT INFORMATION
  Report Type: Spontaneous
  Country: US (occurrence: US)
  Receive Date: 20180102
  Receipt Date: 20180102
  Transmission Date: 20180509
  Serious: No
  Sender: FDA-Public Use
  Company Number: US-TEVA-2017-US-839219

PATIENT

DRUGS (1)
  1. BUPROPION EXTENDED RELEASE XL [Suspect]
     Active Substance: BUPROPION

REACTIONS (4)
  - Headache [Unknown]
  - Depression [Unknown]
  - Product quality issue [Unknown]
  - Anxiety [Unknown]
